FAERS Safety Report 8694750 (Version 2)
Quarter: 2012Q4

REPORT INFORMATION
  Report Type: Spontaneous
  Country: FI (occurrence: None)
  Receive Date: 20120716
  Receipt Date: 20121016
  Transmission Date: 20130627
  Serious: Yes (Hospitalization)
  Sender: FDA-Public Use
  Company Number: 2012P1047719

PATIENT
  Age: 33 Year
  Sex: Male

DRUGS (5)
  1. CEFUROXIME SODIUM [Suspect]
     Indication: URINARY TRACT INFECTION
     Dosage: 1.5 GM; IV
     Route: 042
     Dates: start: 20120523, end: 20120528
  2. KETOPROFEN [Suspect]
     Indication: CALCULUS URINARY
     Dosage: 100 MG; IV
     Route: 042
     Dates: start: 20120520, end: 20120520
  3. CANDESARTAN CILEXETIL [Concomitant]
  4. METRONIDAZOLE [Concomitant]
  5. PARACETAMOL [Concomitant]

REACTIONS (16)
  - Pleural effusion [None]
  - Liver injury [None]
  - Hepatic necrosis [None]
  - Leukocytosis [None]
  - Hypotension [None]
  - Splenomegaly [None]
  - Juvenile idiopathic arthritis [None]
  - Infection [None]
  - Blood glucose increased [None]
  - Transferrin saturation increased [None]
  - Acute hepatic failure [None]
  - Autoimmune hepatitis [None]
  - Abdominal pain upper [None]
  - Pyrexia [None]
  - C-reactive protein increased [None]
  - Ascites [None]
